FAERS Safety Report 6336631-1 (Version None)
Quarter: 2009Q3

REPORT INFORMATION
  Report Type: 
  Country: None (occurrence: None)
  Receive Date: 20090831
  Receipt Date: 20090831
  Transmission Date: 20100115
  Serious: Yes (Other)
  Sender: FDA-Public Use
  Company Number: None

PATIENT
  Age: 28 Year
  Sex: Male
  Weight: 93.441 kg

DRUGS (1)
  1. CLOZAPINE [Suspect]

REACTIONS (3)
  - FEELING DRUNK [None]
  - HANGOVER [None]
  - SOMNOLENCE [None]
